FAERS Safety Report 25601374 (Version 1)
Quarter: 2025Q3

REPORT INFORMATION
  Report Type: Spontaneous
  Country: JP (occurrence: JP)
  Receive Date: 20250724
  Receipt Date: 20250724
  Transmission Date: 20251021
  Serious: Yes (Hospitalization, Other)
  Sender: MERCK SHARP & DOHME LLC
  Company Number: JP-MSD-M2024-28187

PATIENT
  Age: 83 Year
  Sex: Male

DRUGS (3)
  1. KEYTRUDA [Suspect]
     Active Substance: PEMBROLIZUMAB
     Indication: Cholangiocarcinoma
     Dosage: DOSE DESCRIPTION : 200 MILLIGRAM, Q3W?DAILY DOSE : 9.4 MILLIGRAM?REGIMEN DOSE : 200  MILLIGRAM
     Route: 041
     Dates: start: 20240709, end: 20241119
  2. CISPLATIN [Concomitant]
     Active Substance: CISPLATIN
     Indication: Cholangiocarcinoma
     Route: 065
     Dates: start: 2024
  3. GEMCITABINE HYDROCHLORIDE [Concomitant]
     Active Substance: GEMCITABINE HYDROCHLORIDE
     Indication: Cholangiocarcinoma
     Route: 065
     Dates: start: 2024

REACTIONS (6)
  - Haemoptysis [Unknown]
  - Malignant neoplasm progression [Unknown]
  - Adenocarcinoma of colon [Unknown]
  - Neutrophil count decreased [Unknown]
  - Anaemia [Unknown]
  - Tumour obstruction [Unknown]

NARRATIVE: CASE EVENT DATE: 20240716
